FAERS Safety Report 6900201-4 (Version None)
Quarter: 2010Q3

REPORT INFORMATION
  Report Type: 
  Country: None (occurrence: None)
  Receive Date: 20100803
  Receipt Date: 20100728
  Transmission Date: 20110219
  Serious: Yes (Death, Other)
  Sender: FDA-Public Use
  Company Number: NL-MPIJNJ-2010-04092

PATIENT

DRUGS (8)
  1. VELCADE [Suspect]
     Indication: MULTIPLE MYELOMA
     Dosage: 1 MG, UNK
     Route: 042
     Dates: start: 20080901
  2. ENDOXAN                            /00021101/ [Concomitant]
     Indication: DISEASE PROGRESSION
     Dosage: 50 MG, UNK
     Route: 048
     Dates: start: 20080901
  3. OXYCONTIN [Concomitant]
     Indication: PAIN
     Dosage: 10 MG, UNK
     Route: 048
     Dates: start: 20071203
  4. NITRAZEPAM [Concomitant]
     Indication: INSOMNIA
     Dosage: 5 MG, UNK
     Route: 048
     Dates: start: 20080623
  5. LACTULOSE [Concomitant]
     Indication: CONSTIPATION
     Dosage: 300 ML, UNK
     Route: 048
     Dates: start: 20071213
  6. FLUCONAZOLE [Concomitant]
     Indication: INFECTION PROPHYLAXIS
     Dosage: 50 MG, UNK
     Route: 048
     Dates: start: 20071122
  7. DORMICUM                           /00036201/ [Concomitant]
     Indication: INSOMNIA
     Dosage: 7.5 MG, UNK
     Route: 048
     Dates: start: 20071122
  8. COTRIM [Concomitant]
     Indication: INFECTION PROPHYLAXIS
     Dosage: 480 MG, UNK
     Route: 048
     Dates: start: 20071122

REACTIONS (5)
  - BLOOD BLISTER [None]
  - DISEASE PROGRESSION [None]
  - NASOPHARYNGITIS [None]
  - PANCYTOPENIA [None]
  - THROMBOCYTOPENIA [None]
